FAERS Safety Report 6598980-1 (Version None)
Quarter: 2010Q1

REPORT INFORMATION
  Report Type: 
  Country: None (occurrence: None)
  Receive Date: 20100224
  Receipt Date: 20090807
  Transmission Date: 20100710
  Serious: No
  Sender: FDA-Public Use
  Company Number: US-BRISTOL-MYERS SQUIBB COMPANY-14617674

PATIENT
  Age: 68 Year
  Sex: Female
  Weight: 86 kg

DRUGS (3)
  1. GLUCOPHAGE [Suspect]
     Indication: DIABETES MELLITUS
     Dosage: 2 DOSAGE FORM = 2 TABLETS 8 TABS FROM FROM 30CT BOTTLE 4-5 TABS FROM 180CT BOTTLE. LOT#: 98030248
  2. DIOVAN [Concomitant]
  3. LOTREL [Concomitant]

REACTIONS (3)
  - ABDOMINAL DISTENSION [None]
  - FLATULENCE [None]
  - NAUSEA [None]
